FAERS Safety Report 25066153 (Version 1)
Quarter: 2025Q1

REPORT INFORMATION
  Report Type: Spontaneous
  Country: JP (occurrence: JP)
  Receive Date: 20250312
  Receipt Date: 20250312
  Transmission Date: 20250409
  Serious: No
  Sender: ASTELLAS
  Company Number: JP-ASTELLAS-2024-AER-000564

PATIENT

DRUGS (3)
  1. MIRABEGRON [Suspect]
     Active Substance: MIRABEGRON
     Indication: Hypertonic bladder
     Route: 065
  2. MIRABEGRON [Suspect]
     Active Substance: MIRABEGRON
     Route: 065
  3. VESICARE [Suspect]
     Active Substance: SOLIFENACIN SUCCINATE
     Indication: Hypertonic bladder
     Route: 065

REACTIONS (1)
  - Product use issue [Unknown]
